FAERS Safety Report 14934071 (Version 1)
Quarter: 2018Q2

REPORT INFORMATION
  Report Type: Spontaneous
  Country: US (occurrence: US)
  Receive Date: 20180524
  Receipt Date: 20180524
  Transmission Date: 20180711
  Serious: Yes (Other)
  Sender: FDA-Public Use
  Company Number: US-JNJFOC-20180522399

PATIENT
  Sex: Female
  Weight: 51.71 kg

DRUGS (6)
  1. XARELTO [Suspect]
     Active Substance: RIVAROXABAN
     Indication: PRODUCT USED FOR UNKNOWN INDICATION
     Route: 048
  2. XANAX [Concomitant]
     Active Substance: ALPRAZOLAM
     Indication: ANXIETY
     Dosage: 1 TABLET BY MOUTH 3 TIMES DAILY AS NEEDED
     Route: 048
  3. GARAMYCIN [Concomitant]
     Active Substance: GENTAMICIN SULFATE
     Route: 061
  4. XANAX [Concomitant]
     Active Substance: ALPRAZOLAM
     Indication: ANXIETY
     Dosage: 1 TABLET BY MOUTH AT BEDTIME AS NEEDED FOR UP TO 5 DOSES
     Route: 048
  5. COREG [Concomitant]
     Active Substance: CARVEDILOL
     Dosage: 2 TIMES DAILY WITH MEALS
     Route: 048
  6. NORCO [Concomitant]
     Active Substance: ACETAMINOPHEN\HYDROCODONE BITARTRATE
     Indication: PAIN
     Dosage: 10-325 MG PER TABLET
     Route: 048

REACTIONS (2)
  - Deep vein thrombosis [Unknown]
  - Oestrogen receptor positive breast cancer [Unknown]
